FAERS Safety Report 14508609 (Version 1)
Quarter: 2018Q1

REPORT INFORMATION
  Report Type: Spontaneous
  Country: US (occurrence: US)
  Receive Date: 20180209
  Receipt Date: 20180209
  Transmission Date: 20180509
  Serious: Yes (Hospitalization)
  Sender: FDA-Public Use
  Company Number: US-BIOGEN-2018BI00517947

PATIENT
  Sex: Female

DRUGS (1)
  1. AVONEX [Suspect]
     Active Substance: INTERFERON BETA-1A
     Indication: MULTIPLE SCLEROSIS
     Route: 065
     Dates: start: 20120910, end: 20180126

REACTIONS (6)
  - Multiple sclerosis [Unknown]
  - Uhthoff^s phenomenon [Unknown]
  - Rhinovirus infection [Unknown]
  - Muscular weakness [Unknown]
  - Sensory loss [Unknown]
  - Drug effect incomplete [Unknown]
